FAERS Safety Report 6451053-0 (Version None)
Quarter: 2009Q4

REPORT INFORMATION
  Report Type: 
  Country: None (occurrence: None)
  Receive Date: 20091123
  Receipt Date: 20091113
  Transmission Date: 20100525
  Serious: Yes (Hospitalization)
  Sender: FDA-Public Use
  Company Number: GXKR2009NL12502

PATIENT
  Age: 76 Year
  Sex: Female

DRUGS (10)
  1. ALENDRONIC ACID (NGX) [Interacting]
     Indication: BONE DENSITY DECREASED
     Dosage: 10 MG, QD
     Route: 048
     Dates: start: 19990801
  2. ALENDRONIC ACID (NGX) [Interacting]
     Dosage: 70 MG, QW
     Route: 048
     Dates: end: 20080201
  3. OMEPRAZOLE [Suspect]
     Indication: RHEUMATOID ARTHRITIS
     Dosage: UNK
     Route: 065
     Dates: start: 19850101
  4. METHOTREXATE (NGX) [Suspect]
     Indication: RHEUMATOID ARTHRITIS
     Dosage: 15 MG, QW
     Route: 065
     Dates: start: 19990101
  5. PREDNISONE TAB [Interacting]
     Dosage: 10 MG, QD
     Route: 065
     Dates: start: 19960301
  6. PREDNISONE TAB [Interacting]
     Dosage: 5 MG, QD
     Dates: start: 19990101
  7. DICLOFENAC [Concomitant]
     Indication: RHEUMATOID ARTHRITIS
     Route: 065
  8. GOLD [Concomitant]
     Indication: RHEUMATOID ARTHRITIS
  9. PENICILLAMINE [Concomitant]
     Route: 065
  10. INFLIXIMAB [Concomitant]
     Indication: RHEUMATOID ARTHRITIS
     Dosage: 200 MG, BIW X 3 TIME COURSE
     Route: 042
     Dates: start: 20040101

REACTIONS (5)
  - BONE FORMATION DECREASED [None]
  - BONE PAIN [None]
  - FEMUR FRACTURE [None]
  - INTERNAL FIXATION OF FRACTURE [None]
  - RESORPTION BONE INCREASED [None]
